FAERS Safety Report 8202621-7 (Version None)
Quarter: 2012Q1

REPORT INFORMATION
  Report Type: 
  Country: None (occurrence: None)
  Receive Date: 20120312
  Receipt Date: 20120306
  Transmission Date: 20120608
  Serious: No
  Sender: FDA-Public Use
  Company Number: US-PFIZER INC-2012060792

PATIENT
  Sex: Male
  Weight: 113.38 kg

DRUGS (1)
  1. ZYVOX [Suspect]
     Indication: CELLULITIS
     Dosage: 600 MG, 2X/DAY
     Dates: start: 20120303, end: 20120305

REACTIONS (1)
  - PRURITUS [None]
